FAERS Safety Report 14115584 (Version 1)
Quarter: 2017Q4

REPORT INFORMATION
  Report Type: Spontaneous
  Country: GB (occurrence: GB)
  Receive Date: 20171023
  Receipt Date: 20171023
  Transmission Date: 20180321
  Serious: Yes (Other)
  Sender: FDA-Public Use
  Company Number: GB-SA-2017SA123636

PATIENT
  Sex: Male

DRUGS (4)
  1. DENELA [Concomitant]
     Route: 065
  2. EMLA [Concomitant]
     Active Substance: LIDOCAINE\PRILOCAINE
     Route: 065
  3. FABRAZYME [Suspect]
     Active Substance: AGALSIDASE BETA
     Route: 041
  4. PARACETAMOL [Concomitant]
     Active Substance: ACETAMINOPHEN
     Indication: PREMEDICATION
     Route: 065

REACTIONS (3)
  - Croup infectious [Recovered/Resolved]
  - Infusion site pain [Recovered/Resolved]
  - Oral herpes [Unknown]

NARRATIVE: CASE EVENT DATE: 20170830
